FAERS Safety Report 12320924 (Version 1)
Quarter: 2016Q2

REPORT INFORMATION
  Report Type: Spontaneous
  Country: US (occurrence: US)
  Receive Date: 20160429
  Receipt Date: 20160429
  Transmission Date: 20160815
  Serious: No
  Sender: FDA-Public Use
  Company Number: US-ROCHE-1608204

PATIENT
  Sex: Male
  Weight: 91.71 kg

DRUGS (2)
  1. PREDNISONE. [Concomitant]
     Active Substance: PREDNISONE
  2. ESBRIET [Suspect]
     Active Substance: PIRFENIDONE
     Indication: IDIOPATHIC PULMONARY FIBROSIS
     Dosage: 267 MG CAPS: 3 CAPS TID
     Route: 048
     Dates: start: 20150325

REACTIONS (3)
  - Appetite disorder [Unknown]
  - Abdominal discomfort [Unknown]
  - Weight decreased [Unknown]
